FAERS Safety Report 13522335 (Version 1)
Quarter: 2017Q2

REPORT INFORMATION
  Report Type: Spontaneous
  Country: US (occurrence: US)
  Receive Date: 20170508
  Receipt Date: 20170508
  Transmission Date: 20170830
  Serious: Yes (Disabling, Other)
  Sender: FDA-Public Use
  Company Number: None

PATIENT
  Age: 57 Year
  Sex: Female
  Weight: 72.9 kg

DRUGS (7)
  1. TUMS [Concomitant]
     Active Substance: CALCIUM CARBONATE
  2. INVANZ [Suspect]
     Active Substance: ERTAPENEM SODIUM
     Indication: APPENDICECTOMY
     Dosage: OTHER FREQUENCY:INTRAVENOUS;?
     Route: 042
     Dates: start: 20140703, end: 20140708
  3. METRONIDAZOL [Suspect]
     Active Substance: METRONIDAZOLE
     Indication: APPENDICECTOMY
     Route: 042
     Dates: start: 20140702, end: 20140703
  4. EPIPEN [Concomitant]
     Active Substance: EPINEPHRINE
  5. GAVISCON [Concomitant]
     Active Substance: ALUMINUM HYDROXIDE\MAGNESIUM CARBONATE
  6. VITAMIN B12 [Concomitant]
     Active Substance: CYANOCOBALAMIN
  7. TYLENOL [Concomitant]
     Active Substance: ACETAMINOPHEN

REACTIONS (7)
  - Gastrointestinal disorder [None]
  - Neuropathy peripheral [None]
  - Dyspnoea [None]
  - Eructation [None]
  - Arthralgia [None]
  - Dry mouth [None]
  - Fatigue [None]

NARRATIVE: CASE EVENT DATE: 20140630
